FAERS Safety Report 7800921-3 (Version None)
Quarter: 2011Q4

REPORT INFORMATION
  Report Type: 
  Country: None (occurrence: None)
  Receive Date: 20111006
  Receipt Date: 20111004
  Transmission Date: 20120403
  Serious: Yes (Disabling)
  Sender: FDA-Public Use
  Company Number: DE-BAYER-2011-053397

PATIENT
  Age: 75 Year
  Sex: Female
  Weight: 60 kg

DRUGS (2)
  1. AVELOX [Suspect]
     Indication: PNEUMONIA
     Dosage: 1 DF, QD
     Dates: start: 20110414, end: 20110424
  2. IBUPROFEN [Concomitant]
     Dosage: UNK

REACTIONS (2)
  - AGEUSIA [None]
  - ANOSMIA [None]
